FAERS Safety Report 22183832 (Version 1)
Quarter: 2023Q2

REPORT INFORMATION
  Report Type: Spontaneous
  Country: FR (occurrence: FR)
  Receive Date: 20230406
  Receipt Date: 20230406
  Transmission Date: 20230722
  Serious: Yes (Death, Other)
  Sender: FDA-Public Use
  Company Number: FR-NEITUMP-202300008

PATIENT
  Age: 24 Year
  Sex: Female

DRUGS (2)
  1. TRAMADOL HYDROCHLORIDE [Interacting]
     Active Substance: TRAMADOL HYDROCHLORIDE
     Indication: Road traffic accident
     Dosage: 50 MILLIGRAM
     Route: 065
  2. ACUPAN [Interacting]
     Active Substance: NEFOPAM HYDROCHLORIDE
     Indication: Road traffic accident
     Dosage: UNK
     Route: 065

REACTIONS (2)
  - Seizure [Fatal]
  - Drug interaction [Fatal]
